FAERS Safety Report 23320694 (Version 5)
Quarter: 2024Q1

REPORT INFORMATION
  Report Type: Spontaneous
  Country: US (occurrence: US)
  Receive Date: 20231220
  Receipt Date: 20240209
  Transmission Date: 20240410
  Serious: No
  Sender: FDA-Public Use
  Company Number: US-PFIZER INC-202300433620

PATIENT
  Age: 12 Year
  Sex: Male
  Weight: 26.304 kg

DRUGS (2)
  1. GENOTROPIN [Suspect]
     Active Substance: SOMATROPIN
     Indication: Short stature
     Dosage: UNK
  2. GENOTROPIN [Suspect]
     Active Substance: SOMATROPIN
     Indication: Insulin-like growth factor decreased

REACTIONS (1)
  - Device mechanical issue [Unknown]

NARRATIVE: CASE EVENT DATE: 20231126
